FAERS Safety Report 5149953-7 (Version None)
Quarter: 2006Q4

REPORT INFORMATION
  Report Type: 
  Country: None (occurrence: None)
  Receive Date: 20061108
  Receipt Date: 20061025
  Transmission Date: 20070319
  Serious: Yes (Other)
  Sender: FDA-Public Use
  Company Number: 2006130534

PATIENT
  Sex: Female

DRUGS (6)
  1. GEODON [Suspect]
     Indication: BIPOLAR DISORDER
     Dosage: 40 MG (40 MG, 1 IN 1 D)
  2. GEODON [Suspect]
     Indication: MANIA
     Dosage: 40 MG (40 MG, 1 IN 1 D)
  3. TOPAMAX [Concomitant]
  4. WELLBUTRIN [Concomitant]
  5. ALL OTHER THERAPEUTIC PRODUCTS (ALL OTHER THERAPEUTIC PRODUCTS) [Concomitant]
  6. VICODIN [Concomitant]

REACTIONS (2)
  - HYPOKALAEMIA [None]
  - RENAL DISORDER [None]
